FAERS Safety Report 10337345 (Version 2)
Quarter: 2014Q3

REPORT INFORMATION
  Report Type: Report from Study
  Country: US (occurrence: US)
  Receive Date: 20140723
  Receipt Date: 20140723
  Transmission Date: 20150326
  Serious: Yes (Hospitalization)
  Sender: FDA-Public Use
  Company Number: US-MYLANLABS-2014S1016952

PATIENT
  Age: 76 Year
  Sex: Female

DRUGS (5)
  1. CLOZAPINE TABLETS [Suspect]
     Active Substance: CLOZAPINE
     Indication: DELUSION
     Route: 048
     Dates: start: 2014, end: 20140711
  2. CLOZAPINE TABLETS [Suspect]
     Active Substance: CLOZAPINE
     Indication: OFF LABEL USE
     Route: 048
     Dates: start: 2014, end: 20140711
  3. CARBIDOPA/LEVODOPA [Concomitant]
     Active Substance: CARBIDOPA\LEVODOPA
     Dosage: (2) 25MG/100MG TABLETS FIVE TIMES DAILY
     Route: 048
     Dates: end: 20140711
  4. CLOZAPINE TABLETS [Suspect]
     Active Substance: CLOZAPINE
     Indication: OFF LABEL USE
     Route: 048
     Dates: start: 20140627, end: 2014
  5. CLOZAPINE TABLETS [Suspect]
     Active Substance: CLOZAPINE
     Indication: DELUSION
     Route: 048
     Dates: start: 20140627, end: 2014

REACTIONS (5)
  - Hypotension [Not Recovered/Not Resolved]
  - Drug ineffective for unapproved indication [Not Recovered/Not Resolved]
  - Delusion [Not Recovered/Not Resolved]
  - Cerebrovascular accident [Not Recovered/Not Resolved]
  - Haemoglobin decreased [Not Recovered/Not Resolved]

NARRATIVE: CASE EVENT DATE: 2014
